FAERS Safety Report 8760589 (Version 1)
Quarter: 2012Q4

REPORT INFORMATION
  Report Type: Spontaneous
  Country: US (occurrence: None)
  Receive Date: 20120829
  Receipt Date: 20120829
  Transmission Date: 20130627
  Serious: Yes (Other)
  Sender: FDA-Public Use
  Company Number: None

PATIENT
  Age: 9 Year
  Sex: Male

DRUGS (1)
  1. BANANA BOAT KIDS SUNBLOCK [Suspect]
     Dates: start: 20120616, end: 20120616

REACTIONS (1)
  - Skin discolouration [None]
